FAERS Safety Report 7016166-3 (Version None)
Quarter: 2010Q3

REPORT INFORMATION
  Report Type: 
  Country: None (occurrence: None)
  Receive Date: 20100909
  Receipt Date: 20100729
  Transmission Date: 20110219
  Serious: Yes (Other)
  Sender: FDA-Public Use
  Company Number: 2010SP041542

PATIENT
  Age: 48 Year
  Sex: Female

DRUGS (3)
  1. SAPHRIS [Suspect]
     Indication: BIPOLAR DISORDER
     Dosage: 10 MG ; SL
     Route: 060
     Dates: start: 20100101, end: 20100101
  2. TOPAMAX [Concomitant]
  3. ROBAXIN [Concomitant]

REACTIONS (2)
  - DYSKINESIA [None]
  - WEIGHT INCREASED [None]
